FAERS Safety Report 9470531 (Version 1)
Quarter: 2013Q3

REPORT INFORMATION
  Report Type: Report from Study
  Country: US (occurrence: US)
  Receive Date: 20130822
  Receipt Date: 20130822
  Transmission Date: 20140515
  Serious: Yes (Hospitalization)
  Sender: FDA-Public Use
  Company Number: US-ABBOTT-13P-163-1134857-00

PATIENT
  Sex: Female
  Weight: 106.24 kg

DRUGS (8)
  1. HUMIRA [Suspect]
     Indication: CROHN^S DISEASE
  2. HUMIRA [Suspect]
  3. HUMIRA [Suspect]
     Dates: start: 20130517
  4. HYDROCODONE [Concomitant]
     Indication: PAIN
  5. ENTOCORT [Concomitant]
     Indication: CROHN^S DISEASE
  6. TRAZADONE [Concomitant]
     Indication: INSOMNIA
  7. OMEPRAZOLE [Concomitant]
     Indication: DYSPEPSIA
  8. IMURAN [Concomitant]
     Indication: PRODUCT USED FOR UNKNOWN INDICATION

REACTIONS (8)
  - Adhesion [Unknown]
  - Abdominal pain [Not Recovered/Not Resolved]
  - Vomiting [Recovered/Resolved]
  - Nausea [Not Recovered/Not Resolved]
  - Weight decreased [Not Recovered/Not Resolved]
  - Diarrhoea [Not Recovered/Not Resolved]
  - Dehydration [Recovered/Resolved]
  - Abdominal pain [Not Recovered/Not Resolved]
